FAERS Safety Report 14092511 (Version 5)
Quarter: 2018Q1

REPORT INFORMATION
  Report Type: Report from Study
  Country: US (occurrence: US)
  Receive Date: 20171016
  Receipt Date: 20180126
  Transmission Date: 20180508
  Serious: Yes (Death, Hospitalization)
  Sender: FDA-Public Use
  Company Number: US-PUMA BIOTECHNOLOGY, LTD.-2017US012616

PATIENT

DRUGS (17)
  1. NERLYNX [Suspect]
     Active Substance: NERATINIB
     Indication: METASTASIS
     Dosage: 6 TABLETS DAILY
     Route: 048
     Dates: start: 20170920, end: 20171003
  2. POTASSIUM CHLORIDE. [Concomitant]
     Active Substance: POTASSIUM CHLORIDE
     Indication: PRODUCT USED FOR UNKNOWN INDICATION
  3. XANAX [Concomitant]
     Active Substance: ALPRAZOLAM
     Indication: PRODUCT USED FOR UNKNOWN INDICATION
  4. DILAUDID [Concomitant]
     Active Substance: HYDROMORPHONE HYDROCHLORIDE
     Indication: PRODUCT USED FOR UNKNOWN INDICATION
  5. SYNTHROID [Concomitant]
     Active Substance: LEVOTHYROXINE SODIUM
     Indication: PRODUCT USED FOR UNKNOWN INDICATION
  6. EFFEXOR [Concomitant]
     Active Substance: VENLAFAXINE HYDROCHLORIDE
     Indication: PRODUCT USED FOR UNKNOWN INDICATION
  7. HERCEPTIN [Concomitant]
     Active Substance: TRASTUZUMAB
     Indication: PRODUCT USED FOR UNKNOWN INDICATION
  8. AMBIEN [Concomitant]
     Active Substance: ZOLPIDEM TARTRATE
     Indication: PRODUCT USED FOR UNKNOWN INDICATION
  9. NERLYNX [Suspect]
     Active Substance: NERATINIB
     Dosage: 6 TABLETS, DAILY
     Route: 048
     Dates: end: 20180107
  10. LOMOTIL [Concomitant]
     Active Substance: ATROPINE SULFATE\DIPHENOXYLATE HYDROCHLORIDE
     Indication: PRODUCT USED FOR UNKNOWN INDICATION
     Dosage: 1 TABLET, Q6H
  11. IRINOTECAN [Concomitant]
     Active Substance: IRINOTECAN
     Indication: PRODUCT USED FOR UNKNOWN INDICATION
  12. NERLYNX [Suspect]
     Active Substance: NERATINIB
     Indication: BREAST CANCER
     Dosage: 4 TABLETS, DAILY
     Route: 048
  13. NERLYNX [Suspect]
     Active Substance: NERATINIB
     Indication: NEOPLASM MALIGNANT
     Dosage: 5 TABLETS, DAILY
     Route: 048
  14. CITALOPRAM [Concomitant]
     Active Substance: CITALOPRAM HYDROBROMIDE
     Indication: PRODUCT USED FOR UNKNOWN INDICATION
  15. ZOFRAN [Concomitant]
     Active Substance: ONDANSETRON HYDROCHLORIDE
     Indication: PRODUCT USED FOR UNKNOWN INDICATION
  16. FENTANYL. [Concomitant]
     Active Substance: FENTANYL
     Indication: PRODUCT USED FOR UNKNOWN INDICATION
  17. IMODIUM [Concomitant]
     Active Substance: LOPERAMIDE HYDROCHLORIDE
     Indication: PRODUCT USED FOR UNKNOWN INDICATION
     Dosage: 2 CAPSULES, QID
     Route: 065

REACTIONS (7)
  - Blood potassium decreased [Unknown]
  - Death [Fatal]
  - Kidney infection [Unknown]
  - Diarrhoea [Recovering/Resolving]
  - Dehydration [Unknown]
  - Blood creatinine increased [Unknown]
  - Off label use [Unknown]

NARRATIVE: CASE EVENT DATE: 20171006
